FAERS Safety Report 9831876 (Version 2)
Quarter: 2014Q1

REPORT INFORMATION
  Report Type: Spontaneous
  Country: US (occurrence: US)
  Receive Date: 20140121
  Receipt Date: 20140312
  Transmission Date: 20141002
  Serious: No
  Sender: FDA-Public Use
  Company Number: US-PFIZER INC-2014014511

PATIENT
  Age: 60 Year
  Sex: Male
  Weight: 83.9 kg

DRUGS (4)
  1. NAVANE [Suspect]
     Indication: SCHIZOPHRENIA
     Dosage: 5 MG, DAILY
     Dates: start: 1988
  2. NAVANE [Suspect]
     Dosage: 10 MG, DAILY
  3. THIOTHIXENE HCL [Suspect]
     Indication: SCHIZOPHRENIA
     Dosage: 10 MG, DAILY
  4. LEXAPRO [Concomitant]
     Indication: DEPRESSION
     Dosage: 20 MG, DAILY

REACTIONS (2)
  - Teeth brittle [Unknown]
  - Tooth fracture [Unknown]
